FAERS Safety Report 7534455-0 (Version None)
Quarter: 2011Q2

REPORT INFORMATION
  Report Type: 
  Country: None (occurrence: None)
  Receive Date: 20110608
  Receipt Date: 20110526
  Transmission Date: 20111010
  Serious: Yes (Life-Threatening, Hospitalization)
  Sender: FDA-Public Use
  Company Number: IN-GENENTECH-318935

PATIENT
  Sex: Male
  Weight: 85 kg

DRUGS (1)
  1. RITUXAN [Suspect]
     Indication: TRANSPLANT REJECTION
     Dosage: 1 G, Q15D
     Route: 042
     Dates: start: 20090715, end: 20090918

REACTIONS (2)
  - PNEUMOCYSTIS JIROVECI PNEUMONIA [None]
  - HERPES ZOSTER DISSEMINATED [None]
